FAERS Safety Report 7619301-9 (Version None)
Quarter: 2011Q3

REPORT INFORMATION
  Report Type: 
  Country: None (occurrence: None)
  Receive Date: 20110718
  Receipt Date: 20110711
  Transmission Date: 20111222
  Serious: No
  Sender: FDA-Public Use
  Company Number: US-B.I. PHARMACEUTICALS,INC./RIDGEFIELD-2011-BP-16231BP

PATIENT
  Sex: Female

DRUGS (10)
  1. ENALAPRIL MALEATE [Concomitant]
  2. PRADAXA [Suspect]
     Indication: ATRIAL FIBRILLATION
     Dosage: 300 MG
     Route: 048
     Dates: start: 20110618, end: 20110621
  3. LUMIGAN [Concomitant]
  4. ATENOLOL [Concomitant]
  5. CLARINEX [Concomitant]
  6. METFORMIN HCL [Concomitant]
  7. FUROSEMIDE [Concomitant]
  8. ASPIRIN [Concomitant]
     Dosage: 325 ML
  9. VITAMIN D [Concomitant]
  10. GLIPIZIDE [Concomitant]

REACTIONS (4)
  - NAUSEA [None]
  - THROAT TIGHTNESS [None]
  - HYPERSENSITIVITY [None]
  - DYSPEPSIA [None]
